FAERS Safety Report 14680898 (Version 3)
Quarter: 2018Q2

REPORT INFORMATION
  Report Type: Spontaneous
  Country: US (occurrence: US)
  Receive Date: 20180326
  Receipt Date: 20180427
  Transmission Date: 20180711
  Serious: Yes (Hospitalization)
  Sender: FDA-Public Use
  Company Number: US-VIFOR (INTERNATIONAL) INC.-VIT-2018-02747

PATIENT
  Age: 74 Year
  Sex: Female

DRUGS (11)
  1. FERROUS SULFATE. [Concomitant]
     Active Substance: FERROUS SULFATE
  2. HYDRALAZINE HYDROCHLORIDE. [Concomitant]
     Active Substance: HYDRALAZINE HYDROCHLORIDE
  3. HYDROCHLOROTHIAZIDE. [Concomitant]
     Active Substance: HYDROCHLOROTHIAZIDE
  4. VELTASSA [Suspect]
     Active Substance: PATIROMER
     Indication: HYPERKALAEMIA
     Route: 048
     Dates: start: 20160408, end: 2018
  5. ESCITALOPRAM OXALATE. [Concomitant]
     Active Substance: ESCITALOPRAM OXALATE
  6. NIFEDIPINE. [Concomitant]
     Active Substance: NIFEDIPINE
  7. VELTASSA [Suspect]
     Active Substance: PATIROMER
     Dates: start: 201803
  8. SODIUM BICARBONATE. [Concomitant]
     Active Substance: SODIUM BICARBONATE
  9. ASCORBIC ACID~~PYRIDOXINE HYDROCHLORIDE~~RIBOFLAVIN~~NICOTINAMIDE~~CALCIUM PANTOTHENATE~~THIAMINE MO [Concomitant]
  10. ACETYLSALICYLIC ACID [Concomitant]
     Active Substance: ASPIRIN
  11. ERGOCALCIFEROL. [Concomitant]
     Active Substance: ERGOCALCIFEROL

REACTIONS (8)
  - Faeces hard [Recovered/Resolved]
  - Headache [Recovering/Resolving]
  - Renal impairment [Unknown]
  - Blood potassium increased [Recovered/Resolved]
  - Cardiac failure congestive [Recovering/Resolving]
  - Drug dose omission [Unknown]
  - Pulmonary thrombosis [Unknown]
  - Renal vein thrombosis [Recovering/Resolving]

NARRATIVE: CASE EVENT DATE: 2018
